FAERS Safety Report 5874096-4 (Version None)
Quarter: 2008Q3

REPORT INFORMATION
  Report Type: 
  Country: None (occurrence: None)
  Receive Date: 20080829
  Receipt Date: 20060926
  Transmission Date: 20090109
  Serious: Yes (Death)
  Sender: FDA-Public Use
  Company Number: 2008S1011337

PATIENT
  Age: 83 Year
  Sex: Male

DRUGS (12)
  1. CLARITHROMYCIN [Suspect]
     Indication: LOWER RESPIRATORY TRACT INFECTION
     Dosage: 500 MG ORAL
     Route: 048
     Dates: start: 20060827, end: 20060902
  2. AMIODARONE (AMIODARONE) (CON.) [Concomitant]
  3. DIGOXIN (DIGOXIN) (CON.) [Concomitant]
  4. DILTIAZEM (DILTIAZEM) (CON.) [Concomitant]
  5. ENOXAPARIN (ENOXAPARIN) (CON.) [Concomitant]
  6. FRUSEMIDE (FUROSEMIDE) (CON.) [Concomitant]
  7. LANSOPRAZOLE (LANSOPRAZOLE) (CON.) [Concomitant]
  8. PREDNISOLONE (PREDNISOLONE) (CON.) [Concomitant]
  9. RAMIPRIL (RAMIPRIL) (CON.) [Concomitant]
  10. RISEDRONATE SODIUM (RISEDRONATE SODIUM) (CON.) [Concomitant]
  11. SERETIDE /01420901/ (SERETIDE /01420901/) (CON.) [Concomitant]
  12. TIOTROPIUM BROMIDE (TIOTROPIUM BROMIDE) (CON.) [Concomitant]

REACTIONS (2)
  - PSEUDOMEMBRANOUS COLITIS [None]
  - SEPSIS [None]
